FAERS Safety Report 7677841-0 (Version None)
Quarter: 2011Q3

REPORT INFORMATION
  Report Type: 
  Country: None (occurrence: None)
  Receive Date: 20110811
  Receipt Date: 20110808
  Transmission Date: 20111222
  Serious: Yes (Hospitalization, Other)
  Sender: FDA-Public Use
  Company Number: US-BAYER-2011-032719

PATIENT
  Age: 23 Year
  Sex: Female
  Weight: 66.667 kg

DRUGS (1)
  1. MIRENA [Suspect]
     Indication: CONTRACEPTION
     Dosage: 20 ?G, CONT
     Route: 015
     Dates: start: 20091201, end: 20110414

REACTIONS (5)
  - NAUSEA [None]
  - PHOTOPHOBIA [None]
  - SUBARACHNOID HAEMORRHAGE [None]
  - HEADACHE [None]
  - DEVICE DISLOCATION [None]
